FAERS Safety Report 9159234 (Version 1)
Quarter: 2013Q1

REPORT INFORMATION
  Report Type: Spontaneous
  Country: US (occurrence: US)
  Receive Date: 20130313
  Receipt Date: 20130313
  Transmission Date: 20140127
  Serious: Yes (Other)
  Sender: FDA-Public Use
  Company Number: US-JNJFOC-20130300347

PATIENT
  Age: 3 Decade
  Sex: Male

DRUGS (4)
  1. REMICADE [Suspect]
     Indication: CROHN^S DISEASE
     Dosage: MAINTENANCE DOSE
     Route: 042
  2. REMICADE [Suspect]
     Indication: CROHN^S DISEASE
     Route: 042
     Dates: end: 2011
  3. TOTAL PARENTERAL NUTRITION [Concomitant]
     Route: 065
  4. DAPTOMYCIN [Concomitant]
     Route: 065

REACTIONS (4)
  - Catheter site infection [Not Recovered/Not Resolved]
  - Fistula [Unknown]
  - Blood iron decreased [Unknown]
  - Asthenia [Unknown]
